FAERS Safety Report 11281329 (Version 3)
Quarter: 2015Q3

REPORT INFORMATION
  Report Type: Spontaneous
  Country: US (occurrence: US)
  Receive Date: 20150717
  Receipt Date: 20150921
  Transmission Date: 20151125
  Serious: No
  Sender: FDA-Public Use
  Company Number: US-PFIZER INC-2015236462

PATIENT
  Age: 64 Year
  Sex: Female
  Weight: 46 kg

DRUGS (18)
  1. FISH OIL [Concomitant]
     Active Substance: FISH OIL
     Dosage: 2X/DAY
     Dates: start: 2010
  2. BIOTIN [Concomitant]
     Active Substance: BIOTIN
  3. CELECOXIB. [Suspect]
     Active Substance: CELECOXIB
     Indication: INTERVERTEBRAL DISC DEGENERATION
  4. MULTIVITAMINS [Concomitant]
     Active Substance: VITAMINS
     Dosage: UNK, 1X/DAY
  5. VITAMIN C [Concomitant]
     Active Substance: ASCORBIC ACID
  6. TYLENOL [Concomitant]
     Active Substance: ACETAMINOPHEN
     Indication: ARTHRITIS
     Dosage: 650 MG, 2X/DAY
     Dates: start: 2010
  7. GLUCOSAMINE AND CHONDROITIN [Concomitant]
     Dosage: 2X/DAY
     Dates: start: 2010
  8. VITAMIN E [Concomitant]
     Active Substance: .ALPHA.-TOCOPHEROL
  9. MAGNESIUM [Concomitant]
     Active Substance: MAGNESIUM
  10. FOLIC [Concomitant]
  11. CELECOXIB. [Suspect]
     Active Substance: CELECOXIB
     Indication: OSTEOARTHRITIS
     Dosage: 200 MG, 2X/DAY
     Route: 048
     Dates: start: 20120625
  12. VITAMIN B [Concomitant]
     Active Substance: VITAMIN B
  13. CALCIUM [Concomitant]
     Active Substance: CALCIUM
     Dosage: 1X/DAY
     Dates: start: 2010
  14. COQ10 [Concomitant]
     Active Substance: UBIDECARENONE
  15. ASPIRIN. [Concomitant]
     Active Substance: ASPIRIN
     Dosage: 81 MG
  16. CELECOXIB. [Suspect]
     Active Substance: CELECOXIB
     Indication: PAIN MANAGEMENT
     Dosage: 200 MG, 2X/DAY
     Route: 048
     Dates: start: 201503
  17. ST JOHN?S WORT [Concomitant]
  18. D3 [Concomitant]
     Active Substance: 25-HYDROXYCHOLECALCIFEROL, 5-TRANS-

REACTIONS (5)
  - Condition aggravated [Not Recovered/Not Resolved]
  - Irritability [Unknown]
  - Depression [Unknown]
  - Drug ineffective [Not Recovered/Not Resolved]
  - Pain [Not Recovered/Not Resolved]

NARRATIVE: CASE EVENT DATE: 2015
